FAERS Safety Report 5571128-8 (Version None)
Quarter: 2007Q4

REPORT INFORMATION
  Report Type: 
  Country: None (occurrence: None)
  Receive Date: 20071221
  Receipt Date: 20071030
  Transmission Date: 20080405
  Serious: Yes (Other)
  Sender: FDA-Public Use
  Company Number: US-PURDUE-USA_2007_0030236

PATIENT
  Sex: Female
  Weight: 57 kg

DRUGS (3)
  1. LORTAB [Concomitant]
     Dosage: 10 UNK, UNK
  2. DURAGESIC-100 [Concomitant]
     Dosage: 75 UNK, UNK
     Route: 062
  3. OXYCONTIN [Suspect]
     Indication: DRUG USE FOR UNKNOWN INDICATION
     Dosage: 40 MG, BID

REACTIONS (10)
  - CARDIAC DISORDER [None]
  - DRUG ABUSE [None]
  - DRUG DEPENDENCE [None]
  - MEMORY IMPAIRMENT [None]
  - MYOCARDIAL INFARCTION [None]
  - NERVOUS SYSTEM DISORDER [None]
  - PAIN [None]
  - PANIC ATTACK [None]
  - STRESS [None]
  - VISUAL DISTURBANCE [None]
